FAERS Safety Report 14973406 (Version 1)
Quarter: 2018Q2

REPORT INFORMATION
  Report Type: Spontaneous
  Country: US (occurrence: US)
  Receive Date: 20180605
  Receipt Date: 20180605
  Transmission Date: 20180711
  Serious: No
  Sender: FDA-Public Use
  Company Number: US-BAYER-2018-098110

PATIENT

DRUGS (2)
  1. MENSTRIDOL [Suspect]
     Active Substance: NAPROXEN SODIUM
  2. MIDOL EXTENDED RELIEF [Suspect]
     Active Substance: NAPROXEN SODIUM
     Dosage: 4 DF, WITHIN TWO HOURS

REACTIONS (2)
  - Product use issue [Unknown]
  - Contraindicated product administered [Unknown]
